FAERS Safety Report 4832127-4 (Version None)
Quarter: 2005Q4

REPORT INFORMATION
  Report Type: 
  Country: None (occurrence: None)
  Receive Date: 20051118
  Receipt Date: 20051109
  Transmission Date: 20060501
  Serious: Yes (Hospitalization)
  Sender: FDA-Public Use
  Company Number: NZ-MERCK-0511NZL00086

PATIENT
  Age: 80 Year
  Sex: Female

DRUGS (9)
  1. ZOCOR [Suspect]
     Indication: BLOOD CHOLESTEROL INCREASED
     Route: 048
     Dates: start: 20031101, end: 20041101
  2. ZOCOR [Suspect]
     Route: 048
     Dates: start: 20041101, end: 20051101
  3. ZOCOR [Suspect]
     Route: 048
     Dates: start: 20051101
  4. FELODIPINE [Concomitant]
     Route: 048
  5. ASPIRIN [Concomitant]
     Route: 048
  6. CILAZAPRIL [Concomitant]
     Route: 048
  7. METOPROLOL [Concomitant]
     Route: 048
  8. CALCIUM CARBONATE [Concomitant]
     Route: 048
  9. ERGOCALCIFEROL [Concomitant]
     Route: 048

REACTIONS (4)
  - ANGINA PECTORIS [None]
  - MUSCULOSKELETAL STIFFNESS [None]
  - OEDEMA PERIPHERAL [None]
  - PAIN IN EXTREMITY [None]
